FAERS Safety Report 4596116-X (Version None)
Quarter: 2005Q1

REPORT INFORMATION
  Report Type: 
  Country: None (occurrence: None)
  Receive Date: 20050224
  Receipt Date: 20050211
  Transmission Date: 20050727
  Serious: Yes (Other)
  Sender: FDA-Public Use
  Company Number: A-CH2005-08676

PATIENT
  Age: 45 Year
  Sex: Male
  Weight: 65 kg

DRUGS (6)
  1. TRACLEER [Suspect]
     Indication: PULMONARY HYPERTENSION
     Dosage: SEE IMAGE, ORAL
     Route: 048
     Dates: start: 20040903, end: 20041101
  2. TRACLEER [Suspect]
     Indication: PULMONARY HYPERTENSION
     Dosage: SEE IMAGE, ORAL
     Route: 048
     Dates: start: 20041101, end: 20041101
  3. TRACLEER [Suspect]
     Indication: PULMONARY HYPERTENSION
     Dosage: SEE IMAGE, ORAL
     Route: 048
     Dates: start: 20041101, end: 20050101
  4. TRACLEER [Suspect]
     Indication: PULMONARY HYPERTENSION
     Dosage: SEE IMAGE, ORAL
     Route: 048
     Dates: start: 20050101
  5. LASILIX (FUROSEMIDE) [Concomitant]
  6. ALDACTONE [Concomitant]

REACTIONS (3)
  - CYTOLYTIC HEPATITIS [None]
  - MEDICATION ERROR [None]
  - REFUSAL OF TREATMENT BY PATIENT [None]
